FAERS Safety Report 8885851 (Version 10)
Quarter: 2014Q2

REPORT INFORMATION
  Report Type: Report from Study
  Country: DE (occurrence: DE)
  Receive Date: 20121102
  Receipt Date: 20140430
  Transmission Date: 20141212
  Serious: Yes (Hospitalization, Disabling)
  Sender: FDA-Public Use
  Company Number: DE-MPIJNJ-2012-07548

PATIENT
  Sex: 0

DRUGS (14)
  1. VELCADE [Suspect]
     Indication: PLASMA CELL MYELOMA
     Dosage: UNK UNK, CYCLIC
     Route: 065
     Dates: start: 20110812, end: 20130503
  2. ACICLOVIR [Concomitant]
  3. ROCEPHIN                           /00672201/ [Concomitant]
     Dosage: UNK
     Dates: start: 20111115
  4. METRONIDAZOL                       /00012501/ [Concomitant]
     Dosage: UNK
     Dates: start: 20111115
  5. CIPROFLOXACIN [Concomitant]
     Dosage: UNK
     Dates: start: 20111118
  6. PANTOPRAZOL [Concomitant]
     Dosage: UNK
     Dates: start: 20110920
  7. TOREM                              /01036501/ [Concomitant]
     Dosage: UNK
     Dates: start: 20120315
  8. FELODIPIN [Concomitant]
     Dosage: UNK
     Dates: start: 20120315
  9. LORZAAR [Concomitant]
     Dosage: UNK
     Dates: start: 20120315
  10. ASS [Concomitant]
     Dosage: UNK
     Dates: start: 20120315
  11. TAMSULOSIN [Concomitant]
     Dosage: UNK
     Dates: start: 20120315
  12. FENTANYL [Concomitant]
     Dosage: UNK
     Dates: start: 20120315
  13. FENISTIL [Concomitant]
     Dosage: UNK
     Dates: start: 20120614
  14. DUROGESIC [Concomitant]
     Dosage: UNK
     Dates: start: 20120614

REACTIONS (5)
  - Skin ulcer [Recovered/Resolved]
  - Tendon necrosis [Recovered/Resolved with Sequelae]
  - Extremity necrosis [Recovered/Resolved with Sequelae]
  - Polyneuropathy [Not Recovered/Not Resolved]
  - Skin ulcer [Recovered/Resolved]
